FAERS Safety Report 21784365 (Version 3)
Quarter: 2023Q1

REPORT INFORMATION
  Report Type: Spontaneous
  Country: US (occurrence: US)
  Receive Date: 20221227
  Receipt Date: 20230120
  Transmission Date: 20230418
  Serious: No
  Sender: FDA-Public Use
  Company Number: US-LUNDBECK-DKLU3056285

PATIENT
  Age: 55 Year

DRUGS (2)
  1. VYEPTI [Suspect]
     Active Substance: EPTINEZUMAB-JJMR
     Indication: Migraine
     Route: 041
     Dates: start: 20221130
  2. VYEPTI [Suspect]
     Active Substance: EPTINEZUMAB-JJMR
     Route: 041

REACTIONS (1)
  - Drug ineffective [Not Recovered/Not Resolved]
